FAERS Safety Report 8355083-3 (Version None)
Quarter: 2012Q2

REPORT INFORMATION
  Report Type: 
  Country: None (occurrence: None)
  Receive Date: 20120511
  Receipt Date: 20120502
  Transmission Date: 20120825
  Serious: Yes (Hospitalization)
  Sender: FDA-Public Use
  Company Number: HU-JNJFOC-20111009941

PATIENT
  Sex: Female
  Weight: 54 kg

DRUGS (9)
  1. GOLIMUMAB [Suspect]
     Route: 058
     Dates: start: 20101025
  2. ASCORBIC ACID [Concomitant]
     Route: 048
     Dates: start: 20090205
  3. ALPRAZOLAM [Concomitant]
     Route: 048
     Dates: start: 20100119
  4. MESALAZIN [Concomitant]
     Route: 048
     Dates: start: 20101108
  5. GOLIMUMAB [Suspect]
     Route: 058
     Dates: start: 20100526
  6. GOLIMUMAB [Suspect]
     Indication: COLITIS ULCERATIVE
     Route: 058
     Dates: start: 20091027
  7. ETHINYL ESTRADIOL [Concomitant]
     Route: 048
     Dates: start: 20090801
  8. GOLIMUMAB [Suspect]
     Route: 058
     Dates: start: 20090914
  9. DROSPIRENONE [Concomitant]
     Route: 048
     Dates: start: 20090801

REACTIONS (1)
  - RECTAL ABSCESS [None]
